FAERS Safety Report 18764930 (Version 2)
Quarter: 2021Q1

REPORT INFORMATION
  Report Type: Spontaneous
  Country: FR (occurrence: FR)
  Receive Date: 20210120
  Receipt Date: 20210316
  Transmission Date: 20210419
  Serious: Yes (Other)
  Sender: FDA-Public Use
  Company Number: NVSC2021FR009390

PATIENT
  Age: 76 Year
  Sex: Female

DRUGS (6)
  1. LOXEN [Concomitant]
     Indication: HYPERTENSION
     Dosage: 50 MG (MORNING AND EVENING)
     Route: 065
  2. EZETROL [Concomitant]
     Active Substance: EZETIMIBE
     Indication: HYPERTENSION
     Dosage: 10 MG (MORNING)
     Route: 065
  3. TAREG [Suspect]
     Active Substance: VALSARTAN
     Dosage: 80 MG, (EVENING)
     Route: 065
  4. COTAREG [Concomitant]
     Active Substance: HYDROCHLOROTHIAZIDE\VALSARTAN
     Indication: HYPERTENSION
     Dosage: 160/12.5 MG (MORNING)
     Route: 065
     Dates: start: 20210113
  5. TAREG [Suspect]
     Active Substance: VALSARTAN
     Indication: HYPERTENSION
     Dosage: 160 MG (MORNING)
     Route: 065
  6. PRAVASTATIN. [Concomitant]
     Active Substance: PRAVASTATIN
     Indication: HYPERTENSION
     Dosage: UNK
     Route: 065

REACTIONS (4)
  - Arteriosclerosis [Unknown]
  - Blood pressure increased [Unknown]
  - Fatigue [Unknown]
  - Peripheral artery haematoma [Not Recovered/Not Resolved]

NARRATIVE: CASE EVENT DATE: 202011
